FAERS Safety Report 19449828 (Version 1)
Quarter: 2021Q2

REPORT INFORMATION
  Report Type: Report from Study
  Country: US (occurrence: US)
  Receive Date: 20210622
  Receipt Date: 20210622
  Transmission Date: 20210717
  Serious: Yes (Other)
  Sender: FDA-Public Use
  Company Number: NVSC2021US132205

PATIENT
  Sex: Male

DRUGS (1)
  1. ENTRESTO [Suspect]
     Active Substance: SACUBITRIL\VALSARTAN
     Indication: CARDIAC FAILURE
     Dosage: 25 MG, BID (HALF IN THE MORNING AND HALF IN THE EVENING)
     Route: 048

REACTIONS (3)
  - Neoplasm malignant [Unknown]
  - Underdose [Unknown]
  - Wrong technique in product usage process [Unknown]
